FAERS Safety Report 13055027 (Version 1)
Quarter: 2016Q4

REPORT INFORMATION
  Report Type: Spontaneous
  Country: US (occurrence: US)
  Receive Date: 20161222
  Receipt Date: 20161222
  Transmission Date: 20170207
  Serious: No
  Sender: FDA-Public Use
  Company Number: US-SUNOVION-2016SUN003242

PATIENT
  Age: 34 Year
  Sex: Female

DRUGS (3)
  1. APTIOM [Suspect]
     Active Substance: ESLICARBAZEPINE ACETATE
     Indication: EPILEPSY
     Dosage: 400 MG, UNK
     Route: 048
  2. KEPPRA [Concomitant]
     Active Substance: LEVETIRACETAM
     Dosage: UNK
  3. KEPPRA [Concomitant]
     Active Substance: LEVETIRACETAM
     Dosage: UNK

REACTIONS (2)
  - Lymphadenopathy [Recovered/Resolved]
  - Lethargy [Recovered/Resolved]
